FAERS Safety Report 16359385 (Version 4)
Quarter: 2019Q3

REPORT INFORMATION
  Report Type: Report from Study
  Country: None (occurrence: US)
  Receive Date: 20190528
  Receipt Date: 20190712
  Transmission Date: 20191004
  Serious: Yes (Hospitalization, Other)
  Sender: FDA-Public Use
  Company Number: US-ABBVIE-19K-163-2664769-00

PATIENT
  Sex: Female
  Weight: 63.56 kg

DRUGS (5)
  1. FOLIC ACID. [Concomitant]
     Active Substance: FOLIC ACID
     Indication: VITAMIN SUPPLEMENTATION
  2. INDERAL [Concomitant]
     Active Substance: PROPRANOLOL HYDROCHLORIDE
     Indication: TREMOR
  3. PROPANOLOL [Concomitant]
     Active Substance: PROPRANOLOL HYDROCHLORIDE
     Indication: TREMOR
  4. METHOTREXATE. [Concomitant]
     Active Substance: METHOTREXATE
     Indication: PSORIATIC ARTHROPATHY
  5. HUMIRA [Suspect]
     Active Substance: ADALIMUMAB
     Indication: PSORIATIC ARTHROPATHY
     Route: 058

REACTIONS (15)
  - Pneumonia [Recovered/Resolved]
  - Pneumonia [Not Recovered/Not Resolved]
  - Breast cancer [Recovered/Resolved]
  - Sepsis [Recovered/Resolved]
  - Injection site pain [Recovering/Resolving]
  - Drug hypersensitivity [Unknown]
  - Bronchitis chronic [Recovered/Resolved]
  - Renal pain [Unknown]
  - Stevens-Johnson syndrome [Recovered/Resolved]
  - Sjogren^s syndrome [Not Recovered/Not Resolved]
  - Rash generalised [Not Recovered/Not Resolved]
  - Bronchitis [Recovered/Resolved]
  - Candida infection [Recovered/Resolved]
  - Endocrine disorder [Unknown]
  - Depression [Not Recovered/Not Resolved]

NARRATIVE: CASE EVENT DATE: 2011
